FAERS Safety Report 8549535-0 (Version None)
Quarter: 2012Q3

REPORT INFORMATION
  Report Type: 
  Country: None (occurrence: None)
  Receive Date: 20120730
  Receipt Date: 20120726
  Transmission Date: 20120928
  Serious: Yes (Life-Threatening)
  Sender: FDA-Public Use
  Company Number: IT-PFIZER INC-2012175433

PATIENT
  Age: 51 Year
  Sex: Female

DRUGS (1)
  1. CARBOPLATIN [Suspect]
     Indication: OVARIAN CANCER RECURRENT
     Dosage: 600 MG, 1X/DAY
     Route: 042
     Dates: start: 20120711, end: 20120711

REACTIONS (4)
  - RASH GENERALISED [None]
  - SWELLING FACE [None]
  - FORMICATION [None]
  - FEELING HOT [None]
